FAERS Safety Report 7963820-2 (Version None)
Quarter: 2011Q4

REPORT INFORMATION
  Report Type: 
  Country: None (occurrence: None)
  Receive Date: 20111208
  Receipt Date: 20111125
  Transmission Date: 20120403
  Serious: Yes (Hospitalization, Other)
  Sender: FDA-Public Use
  Company Number: US-BAYER-2011-036355

PATIENT
  Age: 23 Year
  Sex: Female
  Weight: 79 kg

DRUGS (7)
  1. NAPROXEN [Concomitant]
     Indication: DYSMENORRHOEA
     Dosage: 500 MG, UNK
     Dates: start: 19990101, end: 20110101
  2. PERCOCET [OXYCODONE HYDROCHLORIDE,OXYCODONE TEREPHTHALATE,PARACETA [Concomitant]
     Indication: PAIN MANAGEMENT
     Dosage: UNK
     Dates: start: 20060803
  3. YAZ [Suspect]
     Indication: CONTRACEPTION
     Dosage: UNK
     Route: 048
     Dates: start: 20060601, end: 20060801
  4. YAZ [Suspect]
     Indication: ACNE
  5. YASMIN [Suspect]
     Indication: CONTRACEPTION
     Dosage: UNK
     Route: 048
     Dates: start: 20050601, end: 20060601
  6. SKELAXIN [Concomitant]
     Indication: PAIN MANAGEMENT
     Dosage: UNK
     Dates: start: 20060803
  7. PROTONIX [Concomitant]

REACTIONS (11)
  - PNEUMONIA [None]
  - EMOTIONAL DISTRESS [None]
  - URTICARIA [None]
  - PLEURITIC PAIN [None]
  - PLEURAL EFFUSION [None]
  - DYSPNOEA [None]
  - ANAPHYLACTIC REACTION [None]
  - PULMONARY EMBOLISM [None]
  - ANXIETY [None]
  - PAIN [None]
  - GENERAL PHYSICAL HEALTH DETERIORATION [None]
